FAERS Safety Report 8511049-1 (Version None)
Quarter: 2012Q3

REPORT INFORMATION
  Report Type: 
  Country: None (occurrence: None)
  Receive Date: 20120705
  Receipt Date: 20120626
  Transmission Date: 20120928
  Serious: Yes (Hospitalization, Other)
  Sender: FDA-Public Use
  Company Number: IMP_05924_2012

PATIENT
  Age: 70 Year
  Sex: Female

DRUGS (3)
  1. OMEPRAZOLE [Suspect]
     Indication: ORAL CANDIDIASIS
     Dosage: (DF)
  2. FLUCONAZOLE [Concomitant]
  3. LOSARTAN POTASSIUM [Concomitant]

REACTIONS (10)
  - DELUSION [None]
  - MENTAL STATUS CHANGES [None]
  - CONFUSIONAL STATE [None]
  - DEPRESSION [None]
  - APALLIC SYNDROME [None]
  - BRADYKINESIA [None]
  - IMPAIRED SELF-CARE [None]
  - HALLUCINATIONS, MIXED [None]
  - ANHEDONIA [None]
  - DECREASED APPETITE [None]
